FAERS Safety Report 11580777 (Version 2)
Quarter: 2015Q4

REPORT INFORMATION
  Report Type: Spontaneous
  Country: US (occurrence: US)
  Receive Date: 20151001
  Receipt Date: 20151015
  Transmission Date: 20160304
  Serious: No
  Sender: FDA-Public Use
  Company Number: US-JNJCP-30000306651

PATIENT
  Sex: Female
  Weight: 64 kg

DRUGS (1)
  1. NEUTROGENA ULTRA SHEER DRY TOUCH SUNBLOCK SPF 100 PLUS [Suspect]
     Active Substance: AVOBENZONE\HOMOSALATE\OCTISALATE\OCTOCRYLENE\OXYBENZONE
     Indication: PROPHYLAXIS
     Dosage: ONCE A DAY
     Route: 061

REACTIONS (1)
  - Off label use [Unknown]
